FAERS Safety Report 8322006-2 (Version None)
Quarter: 2012Q2

REPORT INFORMATION
  Report Type: 
  Country: None (occurrence: None)
  Receive Date: 20120430
  Receipt Date: 20120426
  Transmission Date: 20120825
  Serious: Yes (Hospitalization)
  Sender: FDA-Public Use
  Company Number: JP-ROCHE-757065

PATIENT
  Sex: Female
  Weight: 45 kg

DRUGS (11)
  1. COPEGUS [Suspect]
     Indication: HEPATITIS C
     Route: 048
     Dates: start: 20100701, end: 20100817
  2. OLOPATADINE HCL [Concomitant]
     Dosage: DOSAGE IS UNCERTAIN. PERORAL AGENT.
     Route: 048
     Dates: start: 20100701, end: 20110608
  3. MUCOSTA [Concomitant]
     Dosage: DOSAGE IS UNCERTAIN. PERORAL AGENT.
     Route: 048
     Dates: start: 20100701, end: 20110608
  4. COPEGUS [Suspect]
     Route: 048
  5. LEVOTHYROXINE SODIUM [Concomitant]
     Dosage: DOSAGE IS UNCERTAIN. PERORAL AGENT.
     Route: 048
     Dates: start: 20080101, end: 20110608
  6. COPEGUS [Suspect]
     Route: 048
     Dates: start: 20101222, end: 20110608
  7. LIVALO [Concomitant]
     Dosage: DOSAGE IS UNCERTAIN. PERORAL AGENT.
     Route: 048
     Dates: start: 20100701, end: 20110608
  8. LOXONIN [Concomitant]
     Dosage: DOSAGE IS UNCERTAIN. PERORAL AGENT. SINGLE USE.
     Route: 048
     Dates: start: 20100701, end: 20110608
  9. LANSOPRAZOLE [Concomitant]
     Dosage: DOSAGE IS UNCERTAIN.
     Route: 048
     Dates: start: 20080101, end: 20110608
  10. PEGASYS [Suspect]
     Indication: HEPATITIS C
     Route: 058
     Dates: start: 20100701, end: 20110210
  11. PEGASYS [Suspect]
     Route: 058
     Dates: start: 20110325, end: 20110601

REACTIONS (2)
  - ANAEMIA [None]
  - FRACTURE [None]
